FAERS Safety Report 20799134 (Version 1)
Quarter: 2022Q2

REPORT INFORMATION
  Report Type: Spontaneous
  Country: US (occurrence: US)
  Receive Date: 20220508
  Receipt Date: 20220508
  Transmission Date: 20220721
  Serious: Yes (Other)
  Sender: FDA-Public Use
  Company Number: US-BRISTOL-MYERS SQUIBB COMPANY-2022-030161

PATIENT
  Age: 85 Year
  Sex: Female
  Weight: 63.502 kg

DRUGS (1)
  1. POMALYST [Suspect]
     Active Substance: POMALIDOMIDE
     Indication: Plasma cell myeloma
     Dosage: 28 DAYS
     Route: 048
     Dates: start: 20210629

REACTIONS (2)
  - Asthenia [Not Recovered/Not Resolved]
  - Narcolepsy [Not Recovered/Not Resolved]
